FAERS Safety Report 10202833 (Version 1)
Quarter: 2014Q2

REPORT INFORMATION
  Report Type: Spontaneous
  Country: US (occurrence: US)
  Receive Date: 20140522
  Receipt Date: 20140522
  Transmission Date: 20141212
  Serious: No
  Sender: FDA-Public Use
  Company Number: US-SA-2014SA037083

PATIENT
  Sex: Female

DRUGS (3)
  1. LANTUS SOLOSTAR [Suspect]
     Indication: TYPE 2 DIABETES MELLITUS
     Dosage: DOSE:40 UNIT(S)
     Route: 058
     Dates: start: 20140303
  2. SOLOSTAR [Concomitant]
     Dates: start: 20140303
  3. METFORMIN [Concomitant]

REACTIONS (5)
  - Feeling abnormal [Unknown]
  - Headache [Unknown]
  - Hypersensitivity [Unknown]
  - Blood glucose increased [Unknown]
  - Blood glucose decreased [Unknown]
